FAERS Safety Report 21735463 (Version 1)
Quarter: 2022Q4

REPORT INFORMATION
  Report Type: Spontaneous
  Country: US (occurrence: None)
  Receive Date: 20221215
  Receipt Date: 20221215
  Transmission Date: 20230113
  Serious: Yes (unspecified)
  Sender: FDA-Public Use
  Company Number: None

PATIENT
  Age: 55 Year
  Sex: Female
  Weight: 68.04 kg

DRUGS (1)
  1. RESTASIS [Suspect]
     Active Substance: CYCLOSPORINE
     Indication: Dry eye
     Dosage: FREQUENCY : DAILY;?
     Dates: start: 201907, end: 202001

REACTIONS (5)
  - Toxicity to various agents [None]
  - Extra dose administered [None]
  - Vision blurred [None]
  - Eyelid disorder [None]
  - Eye discharge [None]

NARRATIVE: CASE EVENT DATE: 20200101
